FAERS Safety Report 17819801 (Version 1)
Quarter: 2020Q2

REPORT INFORMATION
  Report Type: Spontaneous
  Country: TH (occurrence: TH)
  Receive Date: 20200524
  Receipt Date: 20200524
  Transmission Date: 20200714
  Serious: Yes (Death, Hospitalization)
  Sender: FDA-Public Use
  Company Number: NVSC2020TH140152

PATIENT
  Age: 78 Year
  Sex: Male

DRUGS (4)
  1. INFLIXIMAB [Suspect]
     Active Substance: INFLIXIMAB
     Indication: CROHN^S DISEASE
     Dosage: UNK
     Route: 065
  2. PREDNISOLONE. [Suspect]
     Active Substance: PREDNISOLONE
     Indication: CROHN^S DISEASE
     Dosage: 7.5 MG
     Route: 065
  3. MESALAZINE [Suspect]
     Active Substance: MESALAMINE
     Indication: CROHN^S DISEASE
     Dosage: UNK
     Route: 065
  4. AZATHIOPRINE. [Suspect]
     Active Substance: AZATHIOPRINE
     Indication: CROHN^S DISEASE
     Dosage: UNK
     Route: 065

REACTIONS (14)
  - Intraventricular haemorrhage [Unknown]
  - Pneumocystis jirovecii pneumonia [Unknown]
  - Acute respiratory distress syndrome [Fatal]
  - Mental impairment [Unknown]
  - Nosocomial infection [Unknown]
  - Pyrexia [Fatal]
  - Epstein-Barr virus infection [Unknown]
  - Idiopathic interstitial pneumonia [Fatal]
  - Headache [Unknown]
  - Bronchopulmonary aspergillosis [Unknown]
  - Dyspnoea [Fatal]
  - Cough [Fatal]
  - Cytomegalovirus colitis [Unknown]
  - Autoimmune haemolytic anaemia [Unknown]
